FAERS Safety Report 7870146-4 (Version None)
Quarter: 2011Q4

REPORT INFORMATION
  Report Type: 
  Country: None (occurrence: None)
  Receive Date: 20111028
  Receipt Date: 20110114
  Transmission Date: 20120403
  Serious: Yes (Other)
  Sender: FDA-Public Use
  Company Number: US-AMGEN-USASP2011002432

PATIENT
  Sex: Female

DRUGS (2)
  1. REMICADE [Concomitant]
     Dosage: UNK
     Dates: start: 20060101, end: 20060101
  2. ENBREL [Suspect]
     Indication: RHEUMATOID ARTHRITIS
     Dates: start: 19980201

REACTIONS (10)
  - BLOOD COUNT ABNORMAL [None]
  - URINARY TRACT INFECTION [None]
  - LUPUS-LIKE SYNDROME [None]
  - COUGH [None]
  - MICTURITION URGENCY [None]
  - NASAL SEPTUM DEVIATION [None]
  - POLLAKIURIA [None]
  - HERNIA [None]
  - WHITE BLOOD CELL COUNT DECREASED [None]
  - SINUSITIS [None]
